FAERS Safety Report 9114008 (Version 1)
Quarter: 2013Q1

REPORT INFORMATION
  Report Type: Spontaneous
  Country: US (occurrence: US)
  Receive Date: 20130208
  Receipt Date: 20130208
  Transmission Date: 20140127
  Serious: Yes (Death, Other)
  Sender: FDA-Public Use
  Company Number: CHPA2013US002382

PATIENT
  Age: 45 Year
  Sex: Female

DRUGS (12)
  1. DIPHENHYDRAMINE [Suspect]
     Dosage: UNK, UNK
     Route: 048
  2. DEXTROMETHORPHAN HYDROBROMIDE [Suspect]
     Dosage: UNK, UNK
     Route: 048
  3. HYDROMORPHONE [Suspect]
     Dosage: UNK, UNK
     Route: 048
  4. HYDROXYZINE [Suspect]
     Dosage: UNK, UNK
     Route: 048
  5. GABAPENTIN [Suspect]
     Dosage: UNK, UNK
     Route: 048
  6. MIRTAZAPINE [Suspect]
     Dosage: UNK, UNK
     Route: 048
  7. ZOLPIDEM [Suspect]
     Dosage: UNK, UNK
     Route: 048
  8. FLUOXETINE [Suspect]
     Dosage: UNK, UNK
     Route: 048
  9. ACETAMINOPHEN W/HYDROCODONE [Suspect]
     Dosage: UNK, UNK
     Route: 048
  10. ALPRAZOLAM [Suspect]
     Dosage: UNK, UNK
     Route: 048
  11. LORAZEPAM [Suspect]
     Dosage: UNK, UNK
     Route: 048
  12. PROMETHAZINE [Suspect]
     Dosage: UNK, UNK
     Route: 048

REACTIONS (2)
  - Drug abuse [Fatal]
  - Cardio-respiratory arrest [Unknown]
